FAERS Safety Report 9053580 (Version 1)
Quarter: 2013Q1

REPORT INFORMATION
  Report Type: Spontaneous
  Country: US (occurrence: US)
  Receive Date: 20130208
  Receipt Date: 20130208
  Transmission Date: 20140127
  Serious: No
  Sender: FDA-Public Use
  Company Number: US-TARO-2012P1064401

PATIENT
  Age: 50 Year
  Sex: Female
  Weight: 92.08 kg

DRUGS (4)
  1. NYSTATIN + TRIAMCINOLONE ACETONIDE CREAM USP [Suspect]
     Route: 061
     Dates: start: 201210, end: 201210
  2. METFORMIN 1000 MG [Concomitant]
  3. GLIMEPIRIDE [Concomitant]
  4. BENAZEPRIL [Concomitant]

REACTIONS (5)
  - Pruritus generalised [Recovered/Resolved]
  - Application site pruritus [Recovered/Resolved]
  - Urticaria [Recovered/Resolved]
  - Application site haemorrhage [Recovered/Resolved]
  - Application site erythema [Recovered/Resolved]
